FAERS Safety Report 6985873-0 (Version None)
Quarter: 2010Q3

REPORT INFORMATION
  Report Type: 
  Country: None (occurrence: None)
  Receive Date: 20100915
  Receipt Date: 20100901
  Transmission Date: 20110219
  Serious: Yes (Disabling, Other)
  Sender: FDA-Public Use
  Company Number: PHHY2010BR58163

PATIENT
  Sex: Female

DRUGS (2)
  1. GLEEVEC [Suspect]
     Indication: CHRONIC MYELOID LEUKAEMIA
     Dosage: 400MG DAILY
  2. OMEPRAZOLE [Concomitant]
     Indication: GASTROINTESTINAL DISORDER
     Dosage: UNK

REACTIONS (9)
  - ARTHRALGIA [None]
  - BONE MARROW OEDEMA [None]
  - COMPLEX REGIONAL PAIN SYNDROME [None]
  - ERYTHEMA [None]
  - HYPERHIDROSIS [None]
  - LIMB IMMOBILISATION [None]
  - NEURALGIA [None]
  - PAIN IN EXTREMITY [None]
  - STRESS FRACTURE [None]
